FAERS Safety Report 21614385 (Version 1)
Quarter: 2022Q4

REPORT INFORMATION
  Report Type: Spontaneous
  Country: US (occurrence: None)
  Receive Date: 20221117
  Receipt Date: 20221117
  Transmission Date: 20230113
  Serious: Yes (Death)
  Sender: FDA-Public Use
  Company Number: None

PATIENT
  Age: 84 Year
  Sex: Female
  Weight: 58.47 kg

DRUGS (35)
  1. CAPECITABINE [Suspect]
     Active Substance: CAPECITABINE
     Indication: Pancreatic carcinoma
     Dosage: FREQUENCY : TWICE A DAY;?
     Route: 048
  2. ARTIFICIAL TEARS [Concomitant]
  3. BISACODYL [Concomitant]
     Active Substance: BISACODYL
  4. CALCIUM CARBONATE [Concomitant]
  5. CARVEDILOL [Concomitant]
  6. CLONIDINE HCI [Concomitant]
  7. COLON AID [Concomitant]
  8. COENZYME Q10 [Concomitant]
     Active Substance: DIETARY SUPPLEMENT\UBIDECARENONE
  9. DIAZEPAM [Concomitant]
  10. ELIQUIS [Concomitant]
  11. FENTANYL PATCH [Concomitant]
  12. FISH OIL [Concomitant]
  13. FLORAJEN WOMEN [Concomitant]
  14. HYDRALAZINE HCI [Concomitant]
  15. LASIX [Concomitant]
  16. LOSARTAN POTASSIUM [Concomitant]
  17. LUMIGAN [Concomitant]
  18. MAGNESIUM GLUCONATE [Concomitant]
  19. NORCO [Concomitant]
  20. OCUVITE [Concomitant]
  21. OMEGA [Concomitant]
  22. OMEPRAZOLE [Concomitant]
  23. POTASSIUM CHLORIDE ER [Concomitant]
  24. PRAVASTATIN SODIUM [Concomitant]
  25. PROBIOTIC FORMULA [Concomitant]
  26. PROMETHAZINE [Concomitant]
  27. PSYLLIUM HUSK [Concomitant]
  28. SENNA [Concomitant]
  29. SERTRALINE [Concomitant]
  30. SODIUM CHLORIDE [Concomitant]
  31. TIMOLOL MALEATE [Concomitant]
  32. TRAMADOL HCI [Concomitant]
  33. TYLENOL [Concomitant]
  34. VITAMIN B12 [Concomitant]
  35. VITAMIN D [Concomitant]

REACTIONS (1)
  - Death [None]
